FAERS Safety Report 17730388 (Version 3)
Quarter: 2023Q1

REPORT INFORMATION
  Report Type: Other
  Country: US (occurrence: None)
  Receive Date: 20200430
  Receipt Date: 20230313
  Transmission Date: 20230418
  Serious: Yes (Other)
  Sender: FDA-Public Use
  Company Number: US-ROCHE-2374709

PATIENT
  Age: 54 Year
  Sex: Female
  Weight: 72.640 kg

DRUGS (15)
  1. OCREVUS [Suspect]
     Active Substance: OCRELIZUMAB
     Indication: Relapsing-remitting multiple sclerosis
     Dosage: MOST RECENT INFUSION WAS 31-JUL-2019
     Route: 042
     Dates: start: 20180801
  2. OCREVUS [Suspect]
     Active Substance: OCRELIZUMAB
     Dosage: FIRST FULL DOSE)
     Route: 042
     Dates: start: 201902
  3. OCREVUS [Suspect]
     Active Substance: OCRELIZUMAB
     Dosage: INFUSE 300 MG ON DAY 1 AND DAY 15
     Route: 042
     Dates: start: 201708
  4. FLUVASTATIN [Concomitant]
     Active Substance: FLUVASTATIN SODIUM
     Indication: Blood cholesterol increased
     Route: 048
  5. HYDROXYCHLOROQUINE [Concomitant]
     Active Substance: HYDROXYCHLOROQUINE
     Indication: Peripheral swelling
     Route: 048
  6. VITAMIN D3 [Concomitant]
     Active Substance: CHOLECALCIFEROL
  7. MAGNESIUM [Concomitant]
     Active Substance: MAGNESIUM
  8. PLAQUENIL [Concomitant]
     Active Substance: HYDROXYCHLOROQUINE SULFATE
  9. PRAVASTATIN [Concomitant]
     Active Substance: PRAVASTATIN
  10. CANDESARTAN [Concomitant]
     Active Substance: CANDESARTAN
  11. COQ10 EXCEL [Concomitant]
     Indication: Peripheral swelling
     Dosage: ONGOING : YES
     Route: 048
  12. COQ10 EXCEL [Concomitant]
     Dosage: ONGOING -YES
  13. ROSUVASTATIN [Concomitant]
     Active Substance: ROSUVASTATIN
     Indication: Blood cholesterol increased
     Dosage: ONGOING YES
  14. CALTRATE [Concomitant]
     Active Substance: CALCIUM CARBONATE
     Indication: Osteoporosis
     Dosage: ONGOING: YES
  15. FAMOTIDINE [Concomitant]
     Active Substance: FAMOTIDINE
     Indication: Gastrooesophageal reflux disease
     Dosage: ONGOING: YES

REACTIONS (19)
  - Basal cell carcinoma [Recovered/Resolved]
  - Fatigue [Not Recovered/Not Resolved]
  - Sinus headache [Not Recovered/Not Resolved]
  - Hypoaesthesia [Not Recovered/Not Resolved]
  - Night sweats [Not Recovered/Not Resolved]
  - Gait disturbance [Not Recovered/Not Resolved]
  - Lymphadenopathy [Not Recovered/Not Resolved]
  - Ocular discomfort [Not Recovered/Not Resolved]
  - Pruritus [Recovered/Resolved]
  - Sinus congestion [Recovering/Resolving]
  - Ear pain [Recovering/Resolving]
  - Neuropathy peripheral [Not Recovered/Not Resolved]
  - Pyrexia [Unknown]
  - Rhinorrhoea [Recovering/Resolving]
  - Throat irritation [Recovered/Resolved]
  - Nasopharyngitis [Not Recovered/Not Resolved]
  - Upper respiratory tract congestion [Unknown]
  - Ear congestion [Unknown]
  - Fatigue [Not Recovered/Not Resolved]

NARRATIVE: CASE EVENT DATE: 20170801
